FAERS Safety Report 6328547-1 (Version None)
Quarter: 2009Q3

REPORT INFORMATION
  Report Type: 
  Country: None (occurrence: None)
  Receive Date: 20090826
  Receipt Date: 20071207
  Transmission Date: 20100115
  Serious: Yes (Other)
  Sender: FDA-Public Use
  Company Number: US-ASTRAZENECA-2006UW27784

PATIENT
  Age: 15696 Day
  Sex: Male
  Weight: 149.7 kg

DRUGS (13)
  1. SEROQUEL [Suspect]
     Indication: BIPOLAR DISORDER
     Dosage: 300 - 900 MG A DAY
     Route: 048
     Dates: start: 20040101
  2. SEROQUEL [Suspect]
     Indication: SLEEP DISORDER
     Dosage: 300 - 900 MG A DAY
     Route: 048
     Dates: start: 20040101
  3. SEROQUEL [Suspect]
     Dosage: 100 MG TO 300 MG DAILY
     Route: 048
     Dates: start: 20041124
  4. SEROQUEL [Suspect]
     Dosage: 100 MG TO 300 MG DAILY
     Route: 048
     Dates: start: 20041124
  5. TOPAMAX [Concomitant]
     Indication: DEPRESSION
     Dosage: 50 MG TO 200 MG DAILY
     Dates: start: 20041124
  6. ZOLOFT [Concomitant]
     Indication: DEPRESSION
     Dosage: STRENGTH: 100 MG, 1/2 TO 1 DAILY
     Dates: start: 20041124
  7. CLONIDINE [Concomitant]
     Indication: HYPERTENSION
     Dates: start: 20040914
  8. DIOVAN [Concomitant]
     Indication: HYPERTENSION
     Dosage: 80 MG TO 160 MG
     Dates: start: 20020508
  9. PRAVACHOL [Concomitant]
     Indication: BLOOD CHOLESTEROL
     Dates: start: 20041124
  10. ULTRAM [Concomitant]
     Indication: NEPHROLITHIASIS
     Dosage: STRENGTH: 50 MG AS REQUIRED
     Dates: start: 20041124
  11. CLONAZEPAM [Concomitant]
     Indication: ANXIETY
     Dates: start: 20040914
  12. DEPAKOTE ER [Concomitant]
     Dates: start: 20050209
  13. ZOCOR [Concomitant]
     Indication: HYPERLIPIDAEMIA
     Dates: start: 20070514

REACTIONS (3)
  - DIABETES MELLITUS [None]
  - NEUROPATHY PERIPHERAL [None]
  - TYPE 2 DIABETES MELLITUS [None]
